FAERS Safety Report 9285639 (Version 1)
Quarter: 2013Q2

REPORT INFORMATION
  Report Type: Spontaneous
  Country: PL (occurrence: None)
  Receive Date: 20130507
  Receipt Date: 20130507
  Transmission Date: 20140414
  Serious: Yes (Hospitalization)
  Sender: FDA-Public Use
  Company Number: 1697429

PATIENT
  Age: 59 Year
  Sex: Male
  Weight: 36.97 kg

DRUGS (1)
  1. OXALIPLATIN [Suspect]
     Indication: RECTAL CANCER
     Route: 042
     Dates: start: 20130321, end: 20130321

REACTIONS (2)
  - Myocardial ischaemia [None]
  - Back pain [None]
